FAERS Safety Report 4595048-0 (Version None)
Quarter: 2005Q1

REPORT INFORMATION
  Report Type: 
  Country: None (occurrence: None)
  Receive Date: 20050225
  Receipt Date: 20050208
  Transmission Date: 20050727
  Serious: Yes (Other)
  Sender: FDA-Public Use
  Company Number: 206708

PATIENT
  Age: 45 Year
  Sex: Female
  Weight: 56.6996 kg

DRUGS (8)
  1. AVONEX [Suspect]
     Indication: MULTIPLE SCLEROSIS
     Dosage: 30 UG;QW;IM
     Route: 030
     Dates: start: 20041020, end: 20041020
  2. AZATHIOPRINE [Concomitant]
  3. PREDNISONE [Concomitant]
  4. PROZAC [Concomitant]
  5. CLONAZEPAM [Concomitant]
  6. MULTI-VITAMIN [Concomitant]
  7. VITAMIN E [Concomitant]
  8. CALCIUM WITH VITAMIN D [Concomitant]

REACTIONS (9)
  - ANXIETY [None]
  - DIFFICULTY IN WALKING [None]
  - HYPERSENSITIVITY [None]
  - MOVEMENT DISORDER [None]
  - MUSCLE SPASMS [None]
  - NERVOUS SYSTEM DISORDER [None]
  - PARALYSIS [None]
  - TREMOR [None]
  - VISUAL ACUITY REDUCED [None]
